FAERS Safety Report 25642613 (Version 2)
Quarter: 2025Q4

REPORT INFORMATION
  Report Type: Spontaneous
  Country: US (occurrence: US)
  Receive Date: 20250805
  Receipt Date: 20251120
  Transmission Date: 20260117
  Serious: Yes (Other)
  Sender: ROCHE
  Company Number: US-ROCHE-10000348375

PATIENT
  Age: 39 Year
  Sex: Female

DRUGS (1)
  1. ALECENSA [Suspect]
     Active Substance: ALECTINIB HYDROCHLORIDE
     Indication: Non-small cell lung cancer
     Dosage: 4 CAPSULE
     Route: 048
     Dates: start: 20221114

REACTIONS (8)
  - Weight increased [Recovered/Resolved]
  - Photosensitivity reaction [Recovered/Resolved]
  - Myalgia [Recovering/Resolving]
  - Pneumothorax [Not Recovered/Not Resolved]
  - Pleural effusion [Not Recovered/Not Resolved]
  - Illness [Not Recovered/Not Resolved]
  - Nasopharyngitis [Not Recovered/Not Resolved]
  - Fatigue [Not Recovered/Not Resolved]
